FAERS Safety Report 15474223 (Version 1)
Quarter: 2018Q4

REPORT INFORMATION
  Report Type: Spontaneous
  Country: CN (occurrence: CN)
  Receive Date: 20181008
  Receipt Date: 20181008
  Transmission Date: 20190205
  Serious: Yes (Death)
  Sender: FDA-Public Use
  Company Number: CN-ACTELION-A-CH2018-172233

PATIENT
  Age: 20 Year
  Sex: Female
  Weight: 30 kg

DRUGS (1)
  1. OPSUMIT [Suspect]
     Active Substance: MACITENTAN
     Indication: PRODUCT USED FOR UNKNOWN INDICATION
     Dosage: 5 MG, QD
     Route: 048
     Dates: start: 20180508

REACTIONS (4)
  - Chest pain [Unknown]
  - Generalised oedema [Fatal]
  - Condition aggravated [Unknown]
  - Disease progression [Fatal]
